FAERS Safety Report 21239922 (Version 3)
Quarter: 2022Q3

REPORT INFORMATION
  Report Type: Spontaneous
  Country: KR (occurrence: KR)
  Receive Date: 20220822
  Receipt Date: 20220914
  Transmission Date: 20221026
  Serious: Yes (Death, Life-Threatening, Other)
  Sender: FDA-Public Use
  Company Number: KR-PFIZER INC-202201052023

PATIENT
  Age: 64 Year
  Sex: Female

DRUGS (8)
  1. CYTARABINE [Suspect]
     Active Substance: CYTARABINE
     Indication: Acute myeloid leukaemia
     Dosage: UNK, CYCLIC
     Dates: start: 201603
  2. IDARUBICIN HYDROCHLORIDE [Suspect]
     Active Substance: IDARUBICIN HYDROCHLORIDE
     Indication: Acute myeloid leukaemia
     Dosage: UNK, CYCLIC
     Dates: start: 201605
  3. ADRIAMYCIN [Suspect]
     Active Substance: DOXORUBICIN HYDROCHLORIDE
     Indication: Acute myeloid leukaemia
     Dosage: UNK, CYCLIC
     Dates: start: 201603
  4. FLUDARABINE [Suspect]
     Active Substance: FLUDARABINE PHOSPHATE
     Indication: Acute myeloid leukaemia
     Dosage: UNK, CYCLIC
  5. CYTARABINE [Suspect]
     Active Substance: CYTARABINE
     Indication: Acute myeloid leukaemia
     Dosage: UNK, CYCLIC
  6. GRANULOCYTE COLONY-STIMULATING FACTOR NOS [Suspect]
     Active Substance: GRANULOCYTE COLONY-STIMULATING FACTOR NOS
     Indication: Acute myeloid leukaemia
     Dosage: UNK, CYCLIC
     Dates: start: 201802
  7. CYTARABINE [Suspect]
     Active Substance: CYTARABINE
     Indication: Acute myeloid leukaemia
     Dosage: UNK, CYCLIC
     Dates: start: 201804
  8. DAUNORUBICIN [Suspect]
     Active Substance: DAUNORUBICIN
     Indication: Acute myeloid leukaemia
     Dosage: UNK, CYCLIC

REACTIONS (1)
  - Toxic leukoencephalopathy [Fatal]
